FAERS Safety Report 14474490 (Version 1)
Quarter: 2018Q1

REPORT INFORMATION
  Report Type: Spontaneous
  Country: US (occurrence: US)
  Receive Date: 20180131
  Receipt Date: 20180131
  Transmission Date: 20180509
  Serious: Yes (Hospitalization)
  Sender: FDA-Public Use
  Company Number: None

PATIENT
  Age: 70 Year
  Sex: Male
  Weight: 88.54 kg

DRUGS (1)
  1. LINEZOLID. [Suspect]
     Active Substance: LINEZOLID
     Indication: PNEUMONIA
     Route: 048
     Dates: start: 20180120, end: 20180121

REACTIONS (3)
  - Blood pressure decreased [None]
  - Hepatic enzyme increased [None]
  - Cardiac failure [None]

NARRATIVE: CASE EVENT DATE: 20180121
